FAERS Safety Report 9688801 (Version 2)
Quarter: 2013Q4

REPORT INFORMATION
  Report Type: Report from Study
  Country: CA (occurrence: CA)
  Receive Date: 20131114
  Receipt Date: 20131120
  Transmission Date: 20140711
  Serious: Yes (Other)
  Sender: FDA-Public Use
  Company Number: CA-ABBVIE-13P-028-1168029-00

PATIENT
  Age: 17 Year
  Sex: Female
  Weight: 52.21 kg

DRUGS (2)
  1. HUMIRA [Suspect]
     Indication: CROHN^S DISEASE
     Route: 058
     Dates: start: 20121109
  2. REMICADE [Suspect]
     Indication: PRODUCT USED FOR UNKNOWN INDICATION

REACTIONS (8)
  - Rectal haemorrhage [Not Recovered/Not Resolved]
  - Crohn^s disease [Recovered/Resolved with Sequelae]
  - Treatment failure [Unknown]
  - Drug ineffective [Unknown]
  - Colectomy [Unknown]
  - Crohn^s disease [Not Recovered/Not Resolved]
  - Drug resistance [Unknown]
  - Crohn^s disease [Not Recovered/Not Resolved]
